FAERS Safety Report 13940740 (Version 1)
Quarter: 2017Q3

REPORT INFORMATION
  Report Type: Spontaneous
  Country: US (occurrence: US)
  Receive Date: 20170906
  Receipt Date: 20170906
  Transmission Date: 20171127
  Serious: Yes (Hospitalization)
  Sender: FDA-Public Use
  Company Number: PHHY2017US128191

PATIENT
  Age: 47 Year
  Sex: Male

DRUGS (6)
  1. LACOSAMIDE. [Interacting]
     Active Substance: LACOSAMIDE
     Dosage: 100 MG, BID
     Route: 065
  2. CARBAMAZEPINE. [Suspect]
     Active Substance: CARBAMAZEPINE
     Indication: SEIZURE
     Dosage: UNK
     Route: 065
  3. CARBAMAZEPINE. [Interacting]
     Active Substance: CARBAMAZEPINE
     Dosage: 400 MG, BID
     Route: 065
  4. LACOSAMIDE. [Interacting]
     Active Substance: LACOSAMIDE
     Dosage: 150 MG, BID
     Route: 048
  5. LACOSAMIDE. [Interacting]
     Active Substance: LACOSAMIDE
     Dosage: 150 MG, BID
     Route: 065
  6. LACOSAMIDE. [Interacting]
     Active Substance: LACOSAMIDE
     Indication: SEIZURE
     Dosage: 100 MG, BID
     Route: 065

REACTIONS (5)
  - Hyperammonaemia [Recovered/Resolved]
  - Drug interaction [Unknown]
  - Confusional state [Unknown]
  - Aggression [Unknown]
  - Toxicity to various agents [Unknown]
